FAERS Safety Report 6702611-7 (Version None)
Quarter: 2010Q2

REPORT INFORMATION
  Report Type: 
  Country: None (occurrence: None)
  Receive Date: 20100429
  Receipt Date: 20100419
  Transmission Date: 20101027
  Serious: Yes (Hospitalization)
  Sender: FDA-Public Use
  Company Number: US-NOVOPROD-246217

PATIENT
  Sex: Male
  Weight: 79.819 kg

DRUGS (9)
  1. NOVOSEVEN [Suspect]
     Indication: HAEMOPHILIA B WITH ANTI FACTOR IX
     Dosage: 240 UG/KG, SINGLE
     Route: 042
     Dates: start: 20050723, end: 20050723
  2. NOVOSEVEN [Suspect]
     Dosage: 90 UG/KG, EVERY FOUR HOURS FOR 1 DAY
     Route: 042
  3. NOVOSEVEN [Suspect]
     Dosage: 90 UG/KG, EVERY FOUR HOURS FOR 1 DAY
     Route: 042
     Dates: start: 20010322
  4. NOVOSEVEN [Suspect]
     Dosage: 90 UG/KG, EVERY FOUR HOURS FOR 1 DAY
     Route: 042
     Dates: start: 20010412
  5. NOVOSEVEN [Suspect]
     Dosage: 90 UG/KG, EVERY FOUR HOURS FOR 1 DAY
     Route: 042
     Dates: start: 20021024
  6. NOVOSEVEN [Suspect]
     Dosage: 90 UG/KG, EVERY FOUR HOURS FOR 1 DAY
     Route: 042
     Dates: start: 20030414
  7. NOVOSEVEN [Suspect]
     Dosage: 90 UG/KG, EVERY FOUR HOURS FOR 1 DAY
     Route: 042
  8. NOVOSEVEN [Suspect]
     Dosage: 90 UG/KG, EVERY FOUR HOURS FOR 1 DAY
     Route: 042
  9. NOVOSEVEN [Suspect]
     Dosage: 90 UG/KG, EVERY FOUR HOURS FOR 1 DAY
     Route: 042

REACTIONS (2)
  - CONTUSION [None]
  - PAIN [None]
